FAERS Safety Report 5176843-6 (Version None)
Quarter: 2006Q4

REPORT INFORMATION
  Report Type: 
  Country: None (occurrence: None)
  Receive Date: 20061218
  Receipt Date: 20061206
  Transmission Date: 20070319
  Serious: Yes (Other)
  Sender: FDA-Public Use
  Company Number: US-JNJFOC-20061201983

PATIENT
  Sex: Female
  Weight: 30.39 kg

DRUGS (3)
  1. LEVAQUIN [Suspect]
     Indication: SKIN PAPILLOMA
     Route: 048
  2. CELLCEPT [Concomitant]
     Indication: PROPHYLAXIS AGAINST TRANSPLANT REJECTION
     Route: 065
  3. CYCLOSPORINE [Concomitant]
     Indication: PROPHYLAXIS AGAINST TRANSPLANT REJECTION
     Route: 065

REACTIONS (7)
  - ARTHRALGIA [None]
  - ARTHROPATHY [None]
  - ERYTHEMA [None]
  - GAIT DISTURBANCE [None]
  - MOVEMENT DISORDER [None]
  - OEDEMA PERIPHERAL [None]
  - PAIN IN EXTREMITY [None]
